FAERS Safety Report 6709370-2 (Version None)
Quarter: 2010Q2

REPORT INFORMATION
  Report Type: 
  Country: None (occurrence: None)
  Receive Date: 20100504
  Receipt Date: 20100421
  Transmission Date: 20101027
  Serious: Yes (Other)
  Sender: FDA-Public Use
  Company Number: PHHY2010US25588

PATIENT
  Sex: Male

DRUGS (1)
  1. EXFORGE [Suspect]
     Indication: HYPERTENSION
     Dosage: TABLET (320/5 MG) DAILY
     Dates: start: 20100308, end: 20100315

REACTIONS (11)
  - ABDOMINAL PAIN [None]
  - DIARRHOEA [None]
  - LEUKOCYTOCLASTIC VASCULITIS [None]
  - NAUSEA [None]
  - PAIN IN EXTREMITY [None]
  - PURPURA [None]
  - RASH [None]
  - SCAB [None]
  - SKIN EXFOLIATION [None]
  - STEVENS-JOHNSON SYNDROME [None]
  - WEIGHT DECREASED [None]
